FAERS Safety Report 20603032 (Version 1)
Quarter: 2022Q1

REPORT INFORMATION
  Report Type: Spontaneous
  Country: CN (occurrence: CN)
  Receive Date: 20220316
  Receipt Date: 20220316
  Transmission Date: 20220424
  Serious: Yes (Hospitalization)
  Sender: FDA-Public Use
  Company Number: CN-BAXTER-2022BAX005611

PATIENT
  Age: 4 Year
  Sex: Female
  Weight: 18.2 kg

DRUGS (21)
  1. CYCLOPHOSPHAMIDE [Suspect]
     Active Substance: CYCLOPHOSPHAMIDE
     Indication: Acute lymphocytic leukaemia
     Dosage: D1
     Route: 041
     Dates: start: 20220208, end: 20220208
  2. CYCLOPHOSPHAMIDE [Suspect]
     Active Substance: CYCLOPHOSPHAMIDE
     Dosage: DOSE REINTRODUCED
     Route: 041
  3. MERCAPTOPURINE [Suspect]
     Active Substance: MERCAPTOPURINE
     Indication: Acute lymphocytic leukaemia
     Dosage: (3/5 TABLETS) D1-7
     Route: 048
     Dates: start: 20220208, end: 20220215
  4. PEGASPARGASE [Suspect]
     Active Substance: PEGASPARGASE
     Indication: Acute lymphocytic leukaemia
     Dosage: 1425U (0.38 VIAL) D1
     Route: 030
     Dates: start: 20220208, end: 20220208
  5. PEGASPARGASE [Suspect]
     Active Substance: PEGASPARGASE
     Dosage: DOSE REINTRODUCED
     Route: 030
  6. VINCRISTINE SULFATE [Suspect]
     Active Substance: VINCRISTINE SULFATE
     Indication: Acute lymphocytic leukaemia
     Dosage: D1, D8
     Route: 041
     Dates: start: 20220208, end: 20220215
  7. VINCRISTINE SULFATE [Suspect]
     Active Substance: VINCRISTINE SULFATE
     Dosage: DOSE REINTRODUCED
     Route: 041
  8. CYTARABINE HYDROCHLORIDE [Suspect]
     Active Substance: CYTARABINE HYDROCHLORIDE
     Indication: Acute lymphocytic leukaemia
     Dosage: Q12 D1-7
     Route: 041
     Dates: start: 20220209, end: 20220215
  9. CYTARABINE HYDROCHLORIDE [Suspect]
     Active Substance: CYTARABINE HYDROCHLORIDE
     Dosage: DOSE REINTRODUCED
     Route: 041
  10. METHOTREXATE [Concomitant]
     Active Substance: METHOTREXATE
     Indication: Acute lymphocytic leukaemia
     Route: 037
     Dates: start: 20220208, end: 20220302
  11. METHOTREXATE [Concomitant]
     Active Substance: METHOTREXATE
     Route: 037
     Dates: start: 20220214
  12. METHOTREXATE [Concomitant]
     Active Substance: METHOTREXATE
     Dosage: DOSE REINTRODUCED
     Route: 037
     Dates: start: 20220224
  13. DEXAMETHASONE [Concomitant]
     Active Substance: DEXAMETHASONE
     Indication: Product used for unknown indication
     Route: 037
     Dates: start: 20220208
  14. DEXAMETHASONE [Concomitant]
     Active Substance: DEXAMETHASONE
     Route: 037
     Dates: start: 20220214
  15. DEXAMETHASONE [Concomitant]
     Active Substance: DEXAMETHASONE
     Route: 037
     Dates: start: 20220224
  16. CYTARABINE [Concomitant]
     Active Substance: CYTARABINE
     Indication: Product used for unknown indication
     Route: 037
     Dates: start: 20220208
  17. CYTARABINE [Concomitant]
     Active Substance: CYTARABINE
     Route: 037
     Dates: start: 20220214
  18. CYTARABINE [Concomitant]
     Active Substance: CYTARABINE
     Route: 037
     Dates: start: 20220224
  19. TROPISETRON [Concomitant]
     Active Substance: TROPISETRON
     Indication: Nausea
     Route: 041
     Dates: start: 20220213
  20. TROPISETRON [Concomitant]
     Active Substance: TROPISETRON
     Indication: Vomiting
  21. CEFTAZIDIME [Concomitant]
     Active Substance: CEFTAZIDIME
     Indication: Anti-infective therapy
     Route: 065
     Dates: start: 20220219

REACTIONS (4)
  - Hypoproteinaemia [Not Recovered/Not Resolved]
  - Pneumonia [Not Recovered/Not Resolved]
  - Pyrexia [Not Recovered/Not Resolved]
  - Myelosuppression [Not Recovered/Not Resolved]

NARRATIVE: CASE EVENT DATE: 20220221
